FAERS Safety Report 9867068 (Version 1)
Quarter: 2014Q1

REPORT INFORMATION
  Report Type: Spontaneous
  Country: US (occurrence: None)
  Receive Date: 20140203
  Receipt Date: 20140203
  Transmission Date: 20141002
  Serious: Yes (Other)
  Sender: FDA-Public Use
  Company Number: None

PATIENT
  Age: 49 None
  Sex: Male
  Weight: 74.39 kg

DRUGS (3)
  1. LISINOPRIL [Suspect]
     Indication: HYPERTENSION
     Route: 048
     Dates: start: 20131201, end: 20140125
  2. GLIPIZIDE [Concomitant]
  3. ASPIRIN [Concomitant]

REACTIONS (1)
  - Sexual dysfunction [None]
